FAERS Safety Report 8087980-0 (Version None)
Quarter: 2012Q1

REPORT INFORMATION
  Report Type: 
  Country: None (occurrence: None)
  Receive Date: 20120131
  Receipt Date: 20120123
  Transmission Date: 20120608
  Serious: Yes (Other)
  Sender: FDA-Public Use
  Company Number: BR-ACCORD-012150

PATIENT
  Age: 70 Year
  Sex: Female

DRUGS (1)
  1. MITOMYCIN [Suspect]
     Route: 031

REACTIONS (4)
  - OFF LABEL USE [None]
  - CHOROIDAL EFFUSION [None]
  - EYE INJURY [None]
  - CORNEAL DECOMPENSATION [None]
